FAERS Safety Report 9822426 (Version 1)
Quarter: 2014Q1

REPORT INFORMATION
  Report Type: Spontaneous
  Country: CA (occurrence: CA)
  Receive Date: 20140116
  Receipt Date: 20140116
  Transmission Date: 20141002
  Serious: Yes (Death, Hospitalization)
  Sender: FDA-Public Use
  Company Number: CA-009507513-1401CAN004761

PATIENT
  Age: 78 Year
  Sex: Female

DRUGS (1)
  1. EZETROL [Suspect]
     Dosage: 10 MG, QD
     Route: 048
     Dates: start: 20130712

REACTIONS (2)
  - Cardiac failure [Fatal]
  - Dyspnoea [Unknown]
